APPROVED DRUG PRODUCT: DOBUTAMINE HYDROCHLORIDE IN DEXTROSE 5%
Active Ingredient: DOBUTAMINE HYDROCHLORIDE
Strength: EQ 100MG BASE/100ML
Dosage Form/Route: INJECTABLE;INJECTION
Application: N020269 | Product #002
Applicant: HOSPIRA INC
Approved: Oct 19, 1993 | RLD: No | RS: No | Type: DISCN